FAERS Safety Report 21397831 (Version 3)
Quarter: 2023Q1

REPORT INFORMATION
  Report Type: Report from Study
  Country: US (occurrence: US)
  Receive Date: 20220930
  Receipt Date: 20230102
  Transmission Date: 20230418
  Serious: No
  Sender: FDA-Public Use
  Company Number: US-ABBVIE-4131241

PATIENT
  Age: 58 Year
  Sex: Female

DRUGS (2)
  1. SKYRIZI [Suspect]
     Active Substance: RISANKIZUMAB-RZAA
     Indication: Psoriasis
     Dosage: WEEK ZERO?ONE IN ONCE?FORM STRENGTH 150 MG
     Route: 058
     Dates: start: 20220901, end: 20220901
  2. SKYRIZI [Suspect]
     Active Substance: RISANKIZUMAB-RZAA
     Dosage: WEEK FOUR?ONE IN ONCE?FORM STRENGTH 150 MG
     Route: 058
     Dates: start: 20220929, end: 20220929

REACTIONS (9)
  - Pain [Unknown]
  - Erythema [Unknown]
  - Impaired healing [Unknown]
  - Skin erosion [Unknown]
  - Skin exfoliation [Unknown]
  - Burning sensation [Unknown]
  - Pruritus [Unknown]
  - Ear disorder [Unknown]
  - Glucose tolerance impaired [Unknown]

NARRATIVE: CASE EVENT DATE: 20220901
